FAERS Safety Report 20350271 (Version 1)
Quarter: 2022Q1

REPORT INFORMATION
  Report Type: Spontaneous
  Country: CN (occurrence: CN)
  Receive Date: 20220119
  Receipt Date: 20220119
  Transmission Date: 20220423
  Serious: Yes (Other)
  Sender: FDA-Public Use
  Company Number: CN-BAYER-2022A010221

PATIENT
  Age: 51 Year
  Sex: Male

DRUGS (11)
  1. NEXAVAR [Suspect]
     Active Substance: SORAFENIB
     Indication: Hepatic cancer
     Dosage: UNK
     Route: 048
     Dates: start: 202010, end: 20210720
  2. ENTECAVIR [Concomitant]
     Active Substance: ENTECAVIR
     Indication: Antiviral treatment
     Dosage: UNK
     Route: 048
     Dates: start: 202008
  3. CAMRELIZUMAB [Concomitant]
     Active Substance: CAMRELIZUMAB
     Dosage: UNK
     Dates: start: 20210529, end: 20210529
  4. CAMRELIZUMAB [Concomitant]
     Active Substance: CAMRELIZUMAB
     Dosage: UNK
     Dates: start: 20210618, end: 20210618
  5. CAMRELIZUMAB [Concomitant]
     Active Substance: CAMRELIZUMAB
     Dosage: UNK
     Dates: start: 20210717, end: 20210717
  6. CAMRELIZUMAB [Concomitant]
     Active Substance: CAMRELIZUMAB
     Dosage: UNK
     Dates: start: 20210812, end: 20210812
  7. CAMRELIZUMAB [Concomitant]
     Active Substance: CAMRELIZUMAB
     Dosage: UNK
     Dates: start: 20210906, end: 20210906
  8. CAMRELIZUMAB [Concomitant]
     Active Substance: CAMRELIZUMAB
     Dosage: UNK
     Dates: start: 20210928, end: 20210928
  9. CAMRELIZUMAB [Concomitant]
     Active Substance: CAMRELIZUMAB
     Dosage: UNK
     Dates: start: 20211023, end: 20211023
  10. CAMRELIZUMAB [Concomitant]
     Active Substance: CAMRELIZUMAB
     Dosage: UNK
     Dates: start: 20211115, end: 20211115
  11. CAMRELIZUMAB [Concomitant]
     Active Substance: CAMRELIZUMAB
     Dosage: UNK
     Dates: start: 20211209, end: 20211209

REACTIONS (8)
  - Metastases to lung [None]
  - Hepatic cirrhosis [None]
  - Ascites [None]
  - Gastric ulcer [None]
  - Splenomegaly [None]
  - Varices oesophageal [None]
  - Bundle branch block right [None]
  - Helicobacter test positive [None]

NARRATIVE: CASE EVENT DATE: 20210319
